FAERS Safety Report 6978411-X (Version None)
Quarter: 2010Q3

REPORT INFORMATION
  Report Type: 
  Country: None (occurrence: None)
  Receive Date: 20100908
  Receipt Date: 20100830
  Transmission Date: 20110219
  Serious: Yes (Congenital Anomaly)
  Sender: FDA-Public Use
  Company Number: B0673215B

PATIENT

DRUGS (4)
  1. LAMICTAL [Suspect]
     Indication: BIPOLAR DISORDER
     Dosage: TRANSPLACENTARY
     Route: 064
  2. LITHIUM SALE (FORMULATION UNKNOWN)  (GENERIC) (LITHIUM SALE) [Suspect]
     Indication: BIPOLAR DISORDER
     Dosage: TRANSPLACENTARY
     Route: 064
  3. OLANZAPINE [Suspect]
     Indication: BIPOLAR DISORDER
     Dosage: TRANSPLACENTARY
     Route: 064
  4. FLUOXETINE [Suspect]
     Indication: BIPOLAR DISORDER
     Dosage: TRANSPLACENTARY
     Route: 064

REACTIONS (3)
  - ABORTION SPONTANEOUS [None]
  - FOETAL CHROMOSOME ABNORMALITY [None]
  - MATERNAL DRUGS AFFECTING FOETUS [None]
